FAERS Safety Report 23080139 (Version 2)
Quarter: 2023Q4

REPORT INFORMATION
  Report Type: Report from Study
  Country: DE (occurrence: None)
  Receive Date: 20231018
  Receipt Date: 20231027
  Transmission Date: 20240110
  Serious: Yes (Hospitalization)
  Sender: FDA-Public Use
  Company Number: DE-ROCHE-3440031

PATIENT
  Age: 66 Year
  Sex: Male
  Weight: 86 kg

DRUGS (35)
  1. ATEZOLIZUMAB [Suspect]
     Active Substance: ATEZOLIZUMAB
     Indication: Malignant melanoma
     Dosage: START DATE OF MOST RECENT DOSE OF STUDY DRUG PRIOR TO AE AND SAE: 30/SEP/2023
     Route: 041
     Dates: start: 20170526
  2. VEMURAFENIB [Suspect]
     Active Substance: VEMURAFENIB
     Indication: Malignant melanoma
     Dosage: START DATE OF MOST RECENT DOSE OF STUDY DRUG PRIOR TO AE AND SAE: 26/SEP/2023
     Route: 048
     Dates: start: 20170428
  3. COBIMETINIB [Suspect]
     Active Substance: COBIMETINIB
     Indication: Malignant melanoma
     Dosage: DOSE LAST STUDY DRUG ADMIN PRIOR AE AND SAE: 60 MG, START DATE OF MOST RECENT DOSE OF STUDY DRUG PRI
     Route: 048
     Dates: start: 20170428
  4. CANDESARTAN [Concomitant]
     Active Substance: CANDESARTAN
     Indication: Hypertension
     Route: 048
     Dates: start: 20150801
  5. OMEPRAZOLE [Concomitant]
     Active Substance: OMEPRAZOLE
     Route: 048
     Dates: start: 20170616
  6. GENTAMICIN [Concomitant]
     Active Substance: GENTAMICIN
     Indication: Hordeolum
     Dates: start: 20170801
  7. MAGNESIUM [Concomitant]
     Active Substance: MAGNESIUM
     Indication: Muscle spasms
     Dates: start: 20170725
  8. CALCIUM CARBONATE\CHOLECALCIFEROL [Concomitant]
     Active Substance: CALCIUM CARBONATE\CHOLECALCIFEROL
     Route: 048
     Dates: start: 20171110
  9. ATOSIL [Concomitant]
     Route: 048
     Dates: start: 20180509
  10. IBUPROFEN [Concomitant]
     Active Substance: IBUPROFEN
     Indication: Headache
     Dates: start: 20180717
  11. IBUPROFEN [Concomitant]
     Active Substance: IBUPROFEN
     Indication: Arthralgia
     Dates: start: 20171103
  12. ELIDEL [Concomitant]
     Active Substance: PIMECROLIMUS
     Indication: Angular cheilitis
     Route: 061
     Dates: start: 20181001
  13. SOLARAZE [Concomitant]
     Active Substance: DICLOFENAC SODIUM
     Indication: Actinic keratosis
     Dates: start: 20181123
  14. DEXA EDO [Concomitant]
     Active Substance: DEXAMETHASONE SODIUM PHOSPHATE
     Dates: start: 20171110
  15. HYLO-GEL [Concomitant]
     Dates: start: 20171110
  16. BETAGALEN [Concomitant]
     Dates: start: 20180509
  17. ARCOXIA [Concomitant]
     Active Substance: ETORICOXIB
     Indication: Arthralgia
     Route: 048
     Dates: start: 20190705
  18. PREDNISOLONE [Concomitant]
     Active Substance: PREDNISOLONE
     Indication: Cough
     Route: 048
     Dates: start: 20191114
  19. DICLOFENAC [Concomitant]
     Active Substance: DICLOFENAC
     Indication: Arthralgia
     Dates: start: 20191203
  20. DICLOFENAC [Concomitant]
     Active Substance: DICLOFENAC
     Indication: Headache
  21. POLIDOCANOL\UREA [Concomitant]
     Active Substance: POLIDOCANOL\UREA
     Indication: Pruritus
     Dates: start: 20200103
  22. POLIDOCANOL\UREA [Concomitant]
     Active Substance: POLIDOCANOL\UREA
     Indication: Dry skin
  23. EUPHRASIA [Concomitant]
     Indication: Blepharitis
     Dates: start: 20200123
  24. HYLO GEL [Concomitant]
     Indication: Blepharitis
     Dates: start: 20200123
  25. PANTOPRAZOLE SODIUM [Concomitant]
     Active Substance: PANTOPRAZOLE SODIUM
     Route: 048
     Dates: start: 20200121
  26. POLIDOCANOL\UREA [Concomitant]
     Active Substance: POLIDOCANOL\UREA
     Route: 061
     Dates: start: 20200417
  27. ELIDEL [Concomitant]
     Active Substance: PIMECROLIMUS
     Indication: Vitiligo
     Dates: start: 20200523
  28. METROCREME [Concomitant]
     Indication: Rash
     Dates: start: 20220115
  29. KLISYRI [Concomitant]
     Active Substance: TIRBANIBULIN
     Indication: Actinic keratosis
     Route: 061
     Dates: start: 20220326
  30. AMBROXOL HYDROCHLORIDE [Concomitant]
     Active Substance: AMBROXOL HYDROCHLORIDE
     Indication: Bronchitis
     Route: 048
     Dates: start: 20230109
  31. AMBROXOL HYDROCHLORIDE [Concomitant]
     Active Substance: AMBROXOL HYDROCHLORIDE
     Route: 048
     Dates: start: 20230525
  32. FERROUS GLUCONATE [Concomitant]
     Active Substance: FERROUS GLUCONATE
     Route: 048
     Dates: start: 20221216
  33. FOSTER [Concomitant]
     Active Substance: BECLOMETHASONE\FORMOTEROL
     Indication: Pneumonitis
     Route: 048
     Dates: start: 20230202
  34. MEROPENEM [Concomitant]
     Active Substance: MEROPENEM
     Indication: Urosepsis
     Route: 042
     Dates: start: 20230930
  35. PANTOPRAZOLE SODIUM [Concomitant]
     Active Substance: PANTOPRAZOLE SODIUM
     Indication: Gastric ulcer
     Route: 048
     Dates: start: 20231002

REACTIONS (1)
  - Erysipelas [Recovered/Resolved]

NARRATIVE: CASE EVENT DATE: 20231013
